FAERS Safety Report 11099244 (Version 2)
Quarter: 2015Q3

REPORT INFORMATION
  Report Type: Report from Study
  Country: KR (occurrence: KR)
  Receive Date: 20150508
  Receipt Date: 20150914
  Transmission Date: 20151125
  Serious: Yes (Hospitalization)
  Sender: FDA-Public Use
  Company Number: KR-UCBSA-091911

PATIENT
  Age: 45 Year
  Sex: Male
  Weight: 58.8 kg

DRUGS (6)
  1. *CARBAMAZEPINE [Suspect]
     Active Substance: CARBAMAZEPINE
     Indication: EPILEPSY
     Dosage: 200 MG, 2X/DAY (BID)
     Route: 048
     Dates: start: 20130619, end: 20130709
  2. LOXOPROFEN [Concomitant]
     Active Substance: LOXOPROFEN
     Indication: NASOPHARYNGITIS
     Dosage: 60 MG, 3X/DAY (TID)
     Route: 048
     Dates: start: 20130624, end: 20130625
  3. STREPTODORNASE [Concomitant]
     Active Substance: STREPTODORNASE
     Indication: NASOPHARYNGITIS
     Dosage: 3 MG, 3X/DAY (TID)
     Route: 048
     Dates: start: 20130624, end: 20130625
  4. STREPTODORNASE [Concomitant]
     Active Substance: STREPTODORNASE
     Dosage: 3 MG, 3X/DAY (TID)
     Route: 048
     Dates: start: 20130708, end: 20130709
  5. GRANDPAZE-F [Concomitant]
     Indication: NASOPHARYNGITIS
     Dosage: 1 DF, 3X/DAY (TID)
     Route: 048
     Dates: start: 20130624, end: 20130625
  6. GRANDPAZE-F [Concomitant]
     Dosage: 1 DF, 3X/DAY (TID)
     Route: 048
     Dates: start: 20130708, end: 20130709

REACTIONS (1)
  - Tuberculous pleurisy [Recovered/Resolved]

NARRATIVE: CASE EVENT DATE: 20130701
